FAERS Safety Report 8007059-3 (Version None)
Quarter: 2011Q4

REPORT INFORMATION
  Report Type: 
  Country: None (occurrence: None)
  Receive Date: 20111222
  Receipt Date: 20111222
  Transmission Date: 20120403
  Serious: Yes (Hospitalization)
  Sender: FDA-Public Use
  Company Number: None

PATIENT
  Sex: Male
  Weight: 114 kg

DRUGS (4)
  1. DOXORUBICIN HCL [Suspect]
     Dosage: 119.5 MG
  2. PREDNISONE TAB [Suspect]
     Dosage: 500 MG
  3. VINCRISTINE SULFATE [Suspect]
     Dosage: 1.67 MG
  4. CYCLOPHOSPHAMIDE [Suspect]
     Dosage: 1792.5 MG

REACTIONS (2)
  - MYELODYSPLASTIC SYNDROME [None]
  - PNEUMONIA [None]
